FAERS Safety Report 25315050 (Version 1)
Quarter: 2025Q2

REPORT INFORMATION
  Report Type: Spontaneous
  Country: US (occurrence: US)
  Receive Date: 20250514
  Receipt Date: 20250514
  Transmission Date: 20250717
  Serious: No
  Sender: SANOFI AVENTIS
  Company Number: US-SA-2025SA137336

PATIENT
  Sex: Female
  Weight: 91.18 kg

DRUGS (9)
  1. DUPIXENT [Suspect]
     Active Substance: DUPILUMAB
     Indication: Dermatitis atopic
     Dosage: 300 MG, QOW
     Route: 058
  2. PREDNISONE [Concomitant]
     Active Substance: PREDNISONE
  3. ZYRTEC-D [Concomitant]
     Active Substance: CETIRIZINE HYDROCHLORIDE\PSEUDOEPHEDRINE HYDROCHLORIDE
  4. BENADRYL [Concomitant]
     Active Substance: DIPHENHYDRAMINE HYDROCHLORIDE
  5. FEXOFENADINE HYDROCHLORIDE [Concomitant]
     Active Substance: FEXOFENADINE HYDROCHLORIDE
  6. ESTRADIOL [Concomitant]
     Active Substance: ESTRADIOL
  7. PROGESTERONE [Concomitant]
     Active Substance: PROGESTERONE
  8. POTASSIUM CITRATE [Concomitant]
     Active Substance: POTASSIUM CITRATE
  9. HYDROCHLOROTHIAZIDE [Concomitant]
     Active Substance: HYDROCHLOROTHIAZIDE

REACTIONS (2)
  - Rebound atopic dermatitis [Unknown]
  - Injection site pain [Unknown]
